FAERS Safety Report 9155113 (Version 3)
Quarter: 2013Q3

REPORT INFORMATION
  Report Type: Spontaneous
  Country: JP (occurrence: JP)
  Receive Date: 20130311
  Receipt Date: 20130725
  Transmission Date: 20140515
  Serious: No
  Sender: FDA-Public Use
  Company Number: JP-ASTRAZENECA-2013SE14149

PATIENT
  Age: 0 Year
  Sex: Male
  Weight: 3 kg

DRUGS (1)
  1. ANAPEINE [Suspect]
     Indication: EPIDURAL ANAESTHESIA
     Dosage: 2 MG/ML, DOSE UNKNOWN
     Route: 008
     Dates: start: 20130227, end: 20130228

REACTIONS (1)
  - Hiccups [Recovered/Resolved]
